FAERS Safety Report 8952742 (Version 1)
Quarter: 2012Q4

REPORT INFORMATION
  Report Type: Report from Study
  Country: SG (occurrence: SG)
  Receive Date: 20121205
  Receipt Date: 20121205
  Transmission Date: 20130627
  Serious: Yes (Hospitalization)
  Sender: FDA-Public Use
  Company Number: PHHO2011SG00771

PATIENT
  Age: 78 Year
  Sex: Male

DRUGS (2)
  1. DIGOXIN [Suspect]
     Dosage: UNK
  2. PLACEBO [Suspect]
     Indication: CARDIAC FAILURE ACUTE
     Route: 048
     Dates: start: 20100420

REACTIONS (4)
  - Syncope [Recovered/Resolved]
  - Malaise [Recovered/Resolved]
  - Head discomfort [Recovered/Resolved]
  - Loss of consciousness [Recovered/Resolved]
